FAERS Safety Report 9251792 (Version 1)
Quarter: 2013Q1

REPORT INFORMATION
  Report Type: Spontaneous
  Country: US (occurrence: None)
  Receive Date: 20130305
  Receipt Date: 20130305
  Transmission Date: 20140127
  Serious: Yes (Other)
  Sender: FDA-Public Use
  Company Number: 163-21880-12081745

PATIENT
  Age: 62 Year
  Sex: Female
  Weight: 81.65 kg

DRUGS (9)
  1. REVLIMID [Suspect]
     Indication: PLASMA CELL MYELOMA
     Dosage: 15MG, 21 IN 21 D, PO
     Route: 048
     Dates: start: 20111012
  2. ASPIRIN (ACETYLSALICYLIC ACID) [Concomitant]
  3. BENADRYL (DIPHENHYDRAMINE HYDROCHLORIDE) [Concomitant]
  4. DEXAMETHASONE (DEXAMETHASONE) [Concomitant]
  5. IBUPROFEN (IBUPROFEN) [Concomitant]
  6. PROBIOTIC (BIFIDOBACTERIUM LACTIS) [Concomitant]
  7. VAGIFEM (ESTRADIOL) [Concomitant]
  8. ZOMETA (ZOLEDRONIC ACID) [Concomitant]
  9. FLUTICASONE (FLUTICASONE) [Concomitant]

REACTIONS (3)
  - Ear infection [None]
  - Cough [None]
  - Musculoskeletal chest pain [None]
